FAERS Safety Report 10589136 (Version 1)
Quarter: 2014Q4

REPORT INFORMATION
  Report Type: Spontaneous
  Country: CN (occurrence: CN)
  Receive Date: 20141118
  Receipt Date: 20141118
  Transmission Date: 20150529
  Serious: Yes (Death, Other)
  Sender: FDA-Public Use
  Company Number: PHHY2014CN148310

PATIENT
  Age: 12 Year
  Sex: Female

DRUGS (1)
  1. METOPROLOL [Suspect]
     Active Substance: METOPROLOL
     Indication: LONG QT SYNDROME
     Dosage: 50 MG, QD

REACTIONS (4)
  - Sudden infant death syndrome [Fatal]
  - Bradycardia [Unknown]
  - Electrocardiogram QT prolonged [Unknown]
  - Electrocardiogram T wave amplitude decreased [Unknown]
